FAERS Safety Report 7476650-5 (Version None)
Quarter: 2011Q2

REPORT INFORMATION
  Report Type: 
  Country: None (occurrence: None)
  Receive Date: 20110510
  Receipt Date: 20110510
  Transmission Date: 20111010
  Serious: Yes (Disabling)
  Sender: FDA-Public Use
  Company Number: None

PATIENT
  Age: 70 Year
  Sex: Female
  Weight: 77.1115 kg

DRUGS (1)
  1. ASACOL [Suspect]
     Indication: COLITIS
     Dosage: ASACOL 400MG TABS  TWO TABLETS 2 TIMES A DAY BY MOUTH WITH MEALS
     Route: 048
     Dates: start: 20101124, end: 20101125

REACTIONS (3)
  - TINNITUS [None]
  - DEAFNESS NEUROSENSORY [None]
  - SUDDEN HEARING LOSS [None]
